FAERS Safety Report 6579097-9 (Version None)
Quarter: 2010Q1

REPORT INFORMATION
  Report Type: 
  Country: None (occurrence: None)
  Receive Date: 20100212
  Receipt Date: 20100203
  Transmission Date: 20100710
  Serious: Yes (Hospitalization, Other)
  Sender: FDA-Public Use
  Company Number: US-SANOFI-AVENTIS-200917059US

PATIENT
  Sex: Female

DRUGS (2)
  1. SOLOSTAR [Suspect]
     Indication: DIABETES MELLITUS
  2. LANTUS [Suspect]
     Indication: DIABETES MELLITUS
     Dosage: DOSE:300 UNIT(S)
     Route: 058

REACTIONS (1)
  - ACCIDENTAL OVERDOSE [None]
